FAERS Safety Report 25357463 (Version 1)
Quarter: 2025Q2

REPORT INFORMATION
  Report Type: Spontaneous
  Country: US (occurrence: US)
  Receive Date: 20250526
  Receipt Date: 20250526
  Transmission Date: 20250717
  Serious: No
  Sender: Norvium Bioscience
  Company Number: US-Norvium Bioscience LLC-080100

PATIENT
  Age: 48 Year
  Sex: Male
  Weight: 81.65 kg

DRUGS (1)
  1. TADALAFIL [Suspect]
     Active Substance: TADALAFIL
     Indication: Product used for unknown indication
     Dates: start: 202504

REACTIONS (2)
  - Erection increased [Unknown]
  - Painful erection [Unknown]

NARRATIVE: CASE EVENT DATE: 20250401
